FAERS Safety Report 19399856 (Version 4)
Quarter: 2021Q4

REPORT INFORMATION
  Report Type: Spontaneous
  Country: US (occurrence: US)
  Receive Date: 20210610
  Receipt Date: 20211005
  Transmission Date: 20220303
  Serious: No
  Sender: FDA-Public Use
  Company Number: US-PFIZER INC-2021276900

PATIENT
  Age: 93 Year
  Sex: Female

DRUGS (1)
  1. PREGABALIN [Suspect]
     Active Substance: PREGABALIN
     Dosage: UNK

REACTIONS (6)
  - Dizziness [Unknown]
  - Nausea [Unknown]
  - Feeding disorder [Unknown]
  - Illness [Unknown]
  - Hypersensitivity [Unknown]
  - Asthenia [Unknown]
